FAERS Safety Report 10583928 (Version 1)
Quarter: 2014Q4

REPORT INFORMATION
  Report Type: Spontaneous
  Country: US (occurrence: None)
  Receive Date: 20141113
  Receipt Date: 20141113
  Transmission Date: 20150529
  Serious: Yes (Other)
  Sender: FDA-Public Use
  Company Number: None

PATIENT
  Age: 30 Year
  Sex: Male
  Weight: 79.38 kg

DRUGS (2)
  1. FLUOXETINE 20MG GENERIC THROUGH WALMART [Suspect]
     Active Substance: FLUOXETINE HYDROCHLORIDE
     Indication: DEPRESSION
     Dosage: 1 PILL  ONCE DAILY  TAKEN BY MOUTH
     Route: 048
  2. FLUOXETINE 20MG GENERIC THROUGH WALMART [Suspect]
     Active Substance: FLUOXETINE HYDROCHLORIDE
     Indication: ANXIETY
     Dosage: 1 PILL  ONCE DAILY  TAKEN BY MOUTH
     Route: 048

REACTIONS (3)
  - Dyspepsia [None]
  - Product quality issue [None]
  - Product substitution issue [None]

NARRATIVE: CASE EVENT DATE: 20141112
